FAERS Safety Report 6160350-8 (Version None)
Quarter: 2009Q2

REPORT INFORMATION
  Report Type: 
  Country: None (occurrence: None)
  Receive Date: 20090416
  Receipt Date: 20090401
  Transmission Date: 20091009
  Serious: Yes (Other)
  Sender: FDA-Public Use
  Company Number: 2009000999

PATIENT
  Age: 61 Year
  Sex: Male
  Weight: 65.2 kg

DRUGS (4)
  1. ERLOTINIB (ERLOTINIB) (TABLET) (ERLOTINIB) [Suspect]
     Indication: NON-SMALL CELL LUNG CANCER
     Dosage: (150 MG, QD), ORAL
     Route: 048
     Dates: start: 20090114, end: 20090326
  2. SPELEAR [Concomitant]
  3. MAGMITT (MAGNESIUM OXIDE) [Concomitant]
  4. TALION [Concomitant]

REACTIONS (1)
  - HYPERKALAEMIA [None]
